FAERS Safety Report 7415314-0 (Version None)
Quarter: 2011Q2

REPORT INFORMATION
  Report Type: 
  Country: None (occurrence: None)
  Receive Date: 20110414
  Receipt Date: 20100810
  Transmission Date: 20111010
  Serious: No
  Sender: FDA-Public Use
  Company Number: US-MYLANLABS-2010S1014649

PATIENT
  Sex: Female

DRUGS (1)
  1. VERAPAMIL HCL EXTENDED RELEASE TABLETS, USP [Suspect]
     Indication: BLOOD PRESSURE INCREASED
     Route: 048
     Dates: start: 20100601

REACTIONS (1)
  - POLLAKIURIA [None]
